FAERS Safety Report 6252163-3 (Version None)
Quarter: 2009Q2

REPORT INFORMATION
  Report Type: 
  Country: None (occurrence: None)
  Receive Date: 20090630
  Receipt Date: 20051221
  Transmission Date: 20091009
  Serious: Yes (Hospitalization)
  Sender: FDA-Public Use
  Company Number: US-ROCHE-639676

PATIENT
  Sex: Male

DRUGS (6)
  1. ENFUVIRTIDE [Suspect]
     Route: 065
     Dates: start: 20041021, end: 20060620
  2. TRUVADA [Concomitant]
     Dosage: TDD: 1 TAB.
     Dates: start: 20041021, end: 20060814
  3. KALETRA [Concomitant]
     Dosage: DOSE: 3 TABS, DRUG NAME: 133.3/33.3
     Dates: end: 20050329
  4. ZIAGEN [Concomitant]
     Dates: end: 20050329
  5. MEPRON [Concomitant]
     Dosage: DOSING AMOUNT: 1 TSP.
     Dates: start: 20041014, end: 20060814
  6. VIDEX EC [Concomitant]
     Dates: start: 20050329, end: 20050814

REACTIONS (1)
  - DEHYDRATION [None]
